FAERS Safety Report 8499366-5 (Version None)
Quarter: 2012Q3

REPORT INFORMATION
  Report Type: 
  Country: None (occurrence: None)
  Receive Date: 20120710
  Receipt Date: 20120628
  Transmission Date: 20120928
  Serious: Yes (Other)
  Sender: FDA-Public Use
  Company Number: CA-JNJFOC-20120614715

PATIENT
  Sex: Male
  Weight: 58.7 kg

DRUGS (10)
  1. REMICADE [Suspect]
     Indication: CROHN'S DISEASE
     Route: 042
     Dates: start: 20110105
  2. VALACICLOVIR [Concomitant]
     Route: 065
  3. XALCOM [Concomitant]
     Route: 065
  4. ALL OTHER THERAPEUTICS [Concomitant]
     Route: 065
  5. PENTASA [Concomitant]
     Route: 065
  6. VIROPTIC [Concomitant]
     Route: 065
  7. PREDNISONE [Concomitant]
     Route: 065
  8. LOTEMAX [Concomitant]
     Route: 065
  9. VITAMIN B-12 [Concomitant]
     Route: 050
  10. AZOPT [Concomitant]
     Route: 065

REACTIONS (3)
  - HERPES SIMPLEX [None]
  - CALCULUS BLADDER [None]
  - LIMB OPERATION [None]
